FAERS Safety Report 21962571 (Version 2)
Quarter: 2023Q1

REPORT INFORMATION
  Report Type: Spontaneous
  Country: CH (occurrence: CH)
  Receive Date: 20230207
  Receipt Date: 20230209
  Transmission Date: 20230417
  Serious: Yes (Other)
  Sender: FDA-Public Use
  Company Number: CH-MYLANLABS-2023M1011591

PATIENT
  Sex: Female

DRUGS (12)
  1. ATORVASTATIN [Interacting]
     Active Substance: ATORVASTATIN
     Indication: Product used for unknown indication
     Dosage: 20 MILLIGRAM, AM (IN MORNING)
     Route: 065
  2. SULFASALAZINE [Interacting]
     Active Substance: SULFASALAZINE
     Indication: Product used for unknown indication
     Dosage: 500 MILLIGRAM, AM (MORNING)
     Route: 065
  3. SULFASALAZINE [Interacting]
     Active Substance: SULFASALAZINE
     Dosage: 500 MILLIGRAM, PM (EVENING)
     Route: 065
  4. NOVORAPID [Interacting]
     Active Substance: INSULIN ASPART
     Indication: Product used for unknown indication
     Dosage: 20 INTERNATIONAL UNIT, PRN (AS NEEDED)
     Route: 065
  5. PREDNISOLONE [Interacting]
     Active Substance: PREDNISOLONE
     Indication: Product used for unknown indication
     Dosage: 5 MILLIGRAM, AM (MORNING)
     Route: 065
  6. CALCIUM CARBONATE\CHOLECALCIFEROL [Interacting]
     Active Substance: CALCIUM CARBONATE\CHOLECALCIFEROL
     Indication: Product used for unknown indication
     Dosage: UNK (MORNING)
     Route: 065
  7. LEVEMIR [Interacting]
     Active Substance: INSULIN DETEMIR
     Indication: Product used for unknown indication
     Dosage: 20 MILLIGRAM, AM
     Route: 065
  8. LEVEMIR [Interacting]
     Active Substance: INSULIN DETEMIR
     Dosage: 24 INTERNATIONAL UNIT, PM
     Route: 065
  9. PLAQUENIL [Interacting]
     Active Substance: HYDROXYCHLOROQUINE SULFATE
     Indication: Product used for unknown indication
     Dosage: 200 MILLIGRAM (NOON)
     Route: 065
  10. EMPAGLIFLOZIN\METFORMIN HYDROCHLORIDE [Interacting]
     Active Substance: EMPAGLIFLOZIN\METFORMIN HYDROCHLORIDE
     Indication: Product used for unknown indication
     Dosage: 5 MILLIGRAM (NOON)
     Route: 065
  11. ORENCIA [Interacting]
     Active Substance: ABATACEPT
     Indication: Product used for unknown indication
     Dosage: 125 MILLIGRAM, QW (SATURDAY EVENING)
     Route: 065
  12. METHOTREXATE SODIUM [Interacting]
     Active Substance: METHOTREXATE SODIUM
     Indication: Product used for unknown indication
     Dosage: 20 MILLIGRAM, QW (SUNDAY MORNING)
     Route: 065

REACTIONS (6)
  - Headache [Unknown]
  - Dizziness [Unknown]
  - Abdominal pain upper [Unknown]
  - Ocular discomfort [Unknown]
  - Head discomfort [Unknown]
  - Drug interaction [Unknown]
